FAERS Safety Report 5222906-6 (Version None)
Quarter: 2007Q1

REPORT INFORMATION
  Report Type: 
  Country: None (occurrence: None)
  Receive Date: 20070129
  Receipt Date: 20070118
  Transmission Date: 20070707
  Serious: Yes (Other)
  Sender: FDA-Public Use
  Company Number: US-PFIZER INC-2007005429

PATIENT
  Sex: Female

DRUGS (1)
  1. NARDIL [Suspect]

REACTIONS (1)
  - MANIA [None]
